FAERS Safety Report 4753210-8 (Version None)
Quarter: 2005Q3

REPORT INFORMATION
  Report Type: 
  Country: None (occurrence: None)
  Receive Date: 20050824
  Receipt Date: 20050811
  Transmission Date: 20060218
  Serious: Yes (Hospitalization, Other)
  Sender: FDA-Public Use
  Company Number: 2005115581

PATIENT
  Age: 81 Year
  Sex: Female
  Weight: 89.3586 kg

DRUGS (4)
  1. XALATAN [Suspect]
     Indication: GLAUCOMA
     Dosage: 3 MCG (1.5 MCG, EVERY DAY, INTRAOCULAR
     Route: 031
  2. COSOPT [Concomitant]
  3. INSULIN (INSULIN) [Concomitant]
  4. ALL OTHER THERAPEUTIC PRODUCTS (ALL OTHER THERAPEUTIC PRODUCTS) [Concomitant]

REACTIONS (6)
  - ANXIETY [None]
  - DYSPNOEA [None]
  - MICTURITION URGENCY [None]
  - THERAPY NON-RESPONDER [None]
  - URINARY INCONTINENCE [None]
  - URINARY TRACT INFECTION [None]
